FAERS Safety Report 9046398 (Version 3)
Quarter: 2015Q1

REPORT INFORMATION
  Report Type: Report from Study
  Country: GD (occurrence: DE)
  Receive Date: 20130201
  Receipt Date: 20150304
  Transmission Date: 20150721
  Serious: Yes (Death)
  Sender: FDA-Public Use
  Company Number: DE-MILLENNIUM PHARMACEUTICALS, INC.-2013-00621

PATIENT

DRUGS (10)
  1. VELCADE [Suspect]
     Active Substance: BORTEZOMIB
     Indication: PLASMA CELL MYELOMA
     Dosage: UNK
     Route: 065
     Dates: start: 20110418, end: 20120807
  2. CLEXANE [Concomitant]
     Active Substance: ENOXAPARIN SODIUM
     Dosage: UNK
     Dates: start: 20120917
  3. CITALOPRAM [Concomitant]
     Active Substance: CITALOPRAM HYDROBROMIDE
     Dosage: 20 MG, UNK
     Dates: start: 20120508
  4. MOVICOL                            /01053601/ [Concomitant]
     Dosage: UNK
     Dates: start: 20120917
  5. MST                                /00036302/ [Concomitant]
     Dosage: UNK
     Dates: start: 20120917
  6. THALIDOMID [Concomitant]
     Active Substance: THALIDOMIDE
     Dosage: UNK
     Dates: start: 20120917
  7. DECORTIN [Concomitant]
     Active Substance: PREDNISONE
     Dosage: UNK
     Dates: start: 20120917
  8. FOLIC ACID. [Concomitant]
     Active Substance: FOLIC ACID
     Dosage: UNK
     Dates: start: 20120917
  9. NOVAMINSULFON [Concomitant]
     Active Substance: METAMIZOLE
     Dosage: UNK
     Dates: start: 20120917
  10. COTRIM FORTE EU RHO [Concomitant]
     Dosage: UNK
     Dates: start: 20120917

REACTIONS (1)
  - Death [Fatal]
